FAERS Safety Report 15154738 (Version 1)
Quarter: 2018Q3

REPORT INFORMATION
  Report Type: Spontaneous
  Country: CA (occurrence: CA)
  Receive Date: 20180717
  Receipt Date: 20180717
  Transmission Date: 20181010
  Serious: Yes (Disabling)
  Sender: FDA-Public Use
  Company Number: CA-ASTRAZENECA-2018SE88276

PATIENT
  Age: 67 Year
  Sex: Male
  Weight: 90.7 kg

DRUGS (1)
  1. SEROQUEL [Suspect]
     Active Substance: QUETIAPINE FUMARATE
     Indication: DEPRESSION
     Route: 048

REACTIONS (5)
  - Renal failure [Unknown]
  - Hyperhidrosis [Unknown]
  - Weight increased [Unknown]
  - Epilepsy [Unknown]
  - Dyspnoea [Unknown]
